FAERS Safety Report 20224108 (Version 1)
Quarter: 2021Q4

REPORT INFORMATION
  Report Type: Spontaneous
  Country: US (occurrence: US)
  Receive Date: 20211223
  Receipt Date: 20211223
  Transmission Date: 20220303
  Serious: No
  Sender: FDA-Public Use
  Company Number: US-BAYER-2021A273430

PATIENT
  Age: 60 Year
  Sex: Male

DRUGS (1)
  1. KOGENATE FS [Suspect]
     Active Substance: ANTIHEMOPHILIC FACTOR, HUMAN RECOMBINANT
     Indication: Factor VIII deficiency
     Dosage: 3000 IU, Q3WK, TO PREVENT BLEED FOR BLEEDING DISORDER
     Dates: start: 202009

REACTIONS (2)
  - Intentional product use issue [None]
  - Treatment noncompliance [None]

NARRATIVE: CASE EVENT DATE: 20200924
